FAERS Safety Report 8698957 (Version 2)
Quarter: 2013Q1

REPORT INFORMATION
  Report Type: Spontaneous
  Country: JP (occurrence: JP)
  Receive Date: 20120802
  Receipt Date: 20130301
  Transmission Date: 20140127
  Serious: Yes (Other)
  Sender: FDA-Public Use
  Company Number: JP-ROCHE-1092436

PATIENT
  Age: 81 Year
  Sex: Male

DRUGS (1)
  1. XELODA [Suspect]
     Indication: COLON CANCER
     Dosage: DOSAGE IS UNCERTAIN, STRENGTH : 300
     Route: 048
     Dates: start: 201206

REACTIONS (2)
  - Visual acuity reduced [Unknown]
  - Optic nerve disorder [Unknown]
